FAERS Safety Report 17263657 (Version 1)
Quarter: 2020Q1

REPORT INFORMATION
  Report Type: Spontaneous
  Country: US (occurrence: US)
  Receive Date: 20200113
  Receipt Date: 20200113
  Transmission Date: 20200409
  Serious: Yes (Other)
  Sender: FDA-Public Use
  Company Number: None

PATIENT
  Age: 52 Year
  Sex: Male
  Weight: 148.5 kg

DRUGS (4)
  1. PROBENECID 1G PO BID [Concomitant]
     Dates: start: 20030216
  2. OLUMIANT [Suspect]
     Active Substance: BARICITINIB
     Indication: RHEUMATOID ARTHRITIS
     Route: 048
     Dates: start: 20191001, end: 20200113
  3. COLCHICINE 0.6MG PO BID [Concomitant]
     Dates: start: 20030213
  4. VITAMIN D PO Q WEEK [Concomitant]
     Dates: start: 20180404

REACTIONS (4)
  - Fatigue [None]
  - Neuropathy peripheral [None]
  - Gait disturbance [None]
  - Fall [None]

NARRATIVE: CASE EVENT DATE: 20200110
